FAERS Safety Report 7519256-1 (Version None)
Quarter: 2011Q2

REPORT INFORMATION
  Report Type: 
  Country: None (occurrence: None)
  Receive Date: 20110523
  Receipt Date: 20110511
  Transmission Date: 20111010
  Serious: Yes (Hospitalization)
  Sender: FDA-Public Use
  Company Number: DSA_46699_2011

PATIENT
  Age: 40 Year
  Sex: Female

DRUGS (1)
  1. ENALAPRIL MALEATE [Suspect]
     Indication: ESSENTIAL HYPERTENSION
     Dosage: (20 MG QD ORAL) ; (DF ORAL)
     Route: 048
     Dates: start: 20101220, end: 20110114

REACTIONS (5)
  - SYNCOPE [None]
  - STARVATION [None]
  - CONVULSION [None]
  - DECREASED APPETITE [None]
  - HYPOVOLAEMIA [None]
